FAERS Safety Report 22399974 (Version 9)
Quarter: 2024Q3

REPORT INFORMATION
  Report Type: Report from Study
  Country: US (occurrence: US)
  Receive Date: 20230602
  Receipt Date: 20240722
  Transmission Date: 20241017
  Serious: Yes (Hospitalization, Other)
  Sender: TEVA
  Company Number: US-TEVA-2023-US-2892166

PATIENT
  Age: 70 Year
  Sex: Male

DRUGS (4)
  1. AUSTEDO [Suspect]
     Active Substance: DEUTETRABENAZINE
     Indication: Tardive dyskinesia
     Dosage: DOSAGE TEXT: 12MG TWICE A DAY
     Route: 048
     Dates: start: 20230417, end: 202305
  2. AUSTEDO [Suspect]
     Active Substance: DEUTETRABENAZINE
     Indication: Tardive dyskinesia
     Dosage: DOSAGE TEXT: THREE 6 MILLIGRAM TABLETS IN THE MORNING AND TWO 6 MILLIGRAM TABLETS IN THE EVENING
     Route: 048
     Dates: start: 2023
  3. AUSTEDO [Suspect]
     Active Substance: DEUTETRABENAZINE
     Indication: Tardive dyskinesia
     Dosage: 3 TABLETS IN THE MORNING AND 2 TABLETS AT SUPPER TIME
     Route: 048
  4. AUSTEDO [Suspect]
     Active Substance: DEUTETRABENAZINE
     Indication: Tardive dyskinesia
     Dosage: THREE-6 MG TABLETS TWICE A DAY
     Route: 048
     Dates: start: 20240531, end: 20240628

REACTIONS (12)
  - Impaired gastric emptying [Recovering/Resolving]
  - Cataract [Unknown]
  - Vomiting [Recovered/Resolved]
  - Nausea [Recovered/Resolved]
  - Fatigue [Unknown]
  - Product dose omission issue [Unknown]
  - Abdominal discomfort [Unknown]
  - Dyskinesia [Unknown]
  - Nausea [Not Recovered/Not Resolved]
  - Vomiting [Not Recovered/Not Resolved]
  - Influenza like illness [Not Recovered/Not Resolved]
  - Vision blurred [Recovering/Resolving]

NARRATIVE: CASE EVENT DATE: 20230101
